FAERS Safety Report 9449140 (Version 1)
Quarter: 2013Q3

REPORT INFORMATION
  Report Type: Spontaneous
  Country: US (occurrence: US)
  Receive Date: 20130808
  Receipt Date: 20130808
  Transmission Date: 20140515
  Serious: No
  Sender: FDA-Public Use
  Company Number: US-009507513-1308USA003767

PATIENT
  Age: 44 Year
  Sex: Female

DRUGS (1)
  1. COPPERTONE ULTRAGUARD LOTION SPF 50 [Suspect]
     Indication: HEAVY EXPOSURE TO ULTRAVIOLET LIGHT
     Dosage: UNK, UNKNOWN
     Route: 061
     Dates: start: 20130726

REACTIONS (4)
  - Rash [Not Recovered/Not Resolved]
  - Acne [Not Recovered/Not Resolved]
  - Swelling [Not Recovered/Not Resolved]
  - Erythema [Not Recovered/Not Resolved]
